FAERS Safety Report 10641859 (Version 1)
Quarter: 2014Q4

REPORT INFORMATION
  Report Type: Spontaneous
  Country: RU (occurrence: RU)
  Receive Date: 20141209
  Receipt Date: 20141209
  Transmission Date: 20150529
  Serious: Yes (Other)
  Sender: FDA-Public Use
  Company Number: PHHY2014RU158945

PATIENT
  Age: 70 Year
  Sex: Female

DRUGS (3)
  1. AMOXICLAV QUICK TAB [Suspect]
     Active Substance: AMOXICILLIN\CLAVULANATE POTASSIUM
     Indication: PROTEINURIA
  2. AMOXICLAV QUICK TAB [Suspect]
     Active Substance: AMOXICILLIN\CLAVULANATE POTASSIUM
     Indication: CALCULUS URINARY
     Dosage: 625 MG, UNK
     Route: 048
     Dates: start: 20141130, end: 20141130
  3. AMOXICLAV QUICK TAB [Suspect]
     Active Substance: AMOXICILLIN\CLAVULANATE POTASSIUM
     Indication: HAEMATURIA

REACTIONS (3)
  - Abdominal pain upper [Recovered/Resolved]
  - Dizziness [Recovered/Resolved]
  - Blood pressure increased [Recovering/Resolving]

NARRATIVE: CASE EVENT DATE: 20141130
